FAERS Safety Report 7590305-8 (Version None)
Quarter: 2011Q3

REPORT INFORMATION
  Report Type: 
  Country: None (occurrence: None)
  Receive Date: 20110705
  Receipt Date: 20110704
  Transmission Date: 20111222
  Serious: Yes (Death, Life-Threatening)
  Sender: FDA-Public Use
  Company Number: PT-PFIZER INC-2011071810

PATIENT
  Age: 51 Year
  Sex: Female
  Weight: 51 kg

DRUGS (4)
  1. DIFLUCAN [Suspect]
     Indication: PROPHYLAXIS
     Dosage: 200 MG, 1X/DAY
     Route: 042
     Dates: start: 20110223, end: 20110227
  2. METHYLPREDNISOLONE [Concomitant]
     Dosage: 125 MG, UNK
     Dates: start: 20110220, end: 20110221
  3. TACROLIMUS [Concomitant]
     Dosage: 0.5 MG, 2X/DAY
     Dates: start: 20110220, end: 20110224
  4. LORAZEPAM [Concomitant]
     Dosage: 1 MG, UNK

REACTIONS (2)
  - INFECTIOUS PERITONITIS [None]
  - HEPATIC HAEMORRHAGE [None]
